FAERS Safety Report 6996376-1 (Version None)
Quarter: 2010Q3

REPORT INFORMATION
  Report Type: 
  Country: None (occurrence: None)
  Receive Date: 20100918
  Receipt Date: 20090220
  Transmission Date: 20110219
  Serious: No
  Sender: FDA-Public Use
  Company Number: US-WYE-H08302909

PATIENT
  Sex: Male
  Weight: 72.64 kg

DRUGS (6)
  1. EFFEXOR XR [Suspect]
     Indication: OBSESSIVE-COMPULSIVE DISORDER
     Dosage: WENT UP TO 350 MG 1 TIME PER 1 DAY
     Route: 048
     Dates: end: 20060101
  2. EFFEXOR XR [Suspect]
     Dosage: TAPERED TO 75 MG 1 TIME PER 1 DAY
     Route: 048
     Dates: start: 20060101, end: 20090201
  3. EFFEXOR XR [Suspect]
     Dosage: TAPERED TO 37.5 MG 1 TIME PER 1 DAY
     Route: 048
     Dates: start: 20090201, end: 20090201
  4. EFFEXOR XR [Suspect]
     Route: 048
     Dates: start: 20090201
  5. LIPITOR [Concomitant]
  6. ATENOLOL [Concomitant]

REACTIONS (5)
  - DRUG WITHDRAWAL SYNDROME [None]
  - HEADACHE [None]
  - INFLUENZA LIKE ILLNESS [None]
  - MYALGIA [None]
  - NAUSEA [None]
